FAERS Safety Report 8414043-4 (Version None)
Quarter: 2012Q2

REPORT INFORMATION
  Report Type: 
  Country: None (occurrence: None)
  Receive Date: 20120605
  Receipt Date: 20120601
  Transmission Date: 20120825
  Serious: Yes (Other)
  Sender: FDA-Public Use
  Company Number: BR-BAYER-2012-055031

PATIENT
  Age: 61 Year
  Sex: Male

DRUGS (1)
  1. BETASERON [Suspect]
     Indication: MULTIPLE SCLEROSIS
     Dosage: 8 MIU, BIW
     Route: 058
     Dates: end: 20080101

REACTIONS (2)
  - MALAISE [None]
  - DIABETES MELLITUS [None]
